FAERS Safety Report 13275918 (Version 2)
Quarter: 2017Q1

REPORT INFORMATION
  Report Type: Spontaneous
  Country: RU (occurrence: RU)
  Receive Date: 20170228
  Receipt Date: 20170315
  Transmission Date: 20170428
  Serious: Yes (Life-Threatening)
  Sender: FDA-Public Use
  Company Number: RU-BEH-2017078278

PATIENT
  Age: 0 Day
  Sex: Male
  Weight: 3.14 kg

DRUGS (1)
  1. BERINERT [Suspect]
     Active Substance: HUMAN C1-ESTERASE INHIBITOR
     Indication: FOETAL EXPOSURE DURING PREGNANCY
     Dosage: 1500 IU, TOT
     Route: 065
     Dates: start: 20160504

REACTIONS (6)
  - Respiratory disorder [Recovered/Resolved]
  - Hypotension [Recovered/Resolved]
  - Neonatal asphyxia [Recovered/Resolved]
  - Pulmonary haemorrhage [Recovered/Resolved]
  - Carditis [Recovered/Resolved]
  - Congenital pneumonia [Recovered/Resolved]

NARRATIVE: CASE EVENT DATE: 20160504
